FAERS Safety Report 8725158 (Version 3)
Quarter: 2012Q4

REPORT INFORMATION
  Report Type: 
  Country: US (occurrence: US)
  Receive Date: 20120815
  Receipt Date: 20120903
  Transmission Date: 20130627
  Serious: Yes (Other)
  Sender: FDA-Public Use
  Company Number: PHEH2012US015687

PATIENT
  Sex: Male

DRUGS (4)
  1. GLEEVEC [Suspect]
  2. PREVACID [Suspect]
  3. TEKTURNA [Suspect]
  4. ACE INHIBITOR NOS [Suspect]

REACTIONS (6)
  - White blood cell count increased [Unknown]
  - Platelet count increased [Unknown]
  - Drug resistance [Unknown]
  - Oedema [Unknown]
  - Cough [Unknown]
  - Blood pressure increased [Unknown]
